FAERS Safety Report 4806784-2 (Version None)
Quarter: 2005Q4

REPORT INFORMATION
  Report Type: 
  Country: None (occurrence: None)
  Receive Date: 20051019
  Receipt Date: 20050929
  Transmission Date: 20060501
  Serious: Yes (Hospitalization)
  Sender: FDA-Public Use
  Company Number: AU_050909005

PATIENT
  Age: 48 Year
  Sex: Female

DRUGS (2)
  1. ZYPREXA [Suspect]
     Indication: SCHIZOPHRENIA
     Dosage: 30 MG DAY
     Dates: start: 20050101
  2. RISPERDAL CONSTA [Concomitant]

REACTIONS (3)
  - DRUG EFFECT DECREASED [None]
  - RESTLESSNESS [None]
  - TARDIVE DYSKINESIA [None]
